FAERS Safety Report 15336176 (Version 1)
Quarter: 2018Q3

REPORT INFORMATION
  Report Type: Spontaneous
  Country: CZ (occurrence: CZ)
  Receive Date: 20180830
  Receipt Date: 20180830
  Transmission Date: 20181010
  Serious: Yes (Death, Other)
  Sender: FDA-Public Use
  Company Number: CZ-PFIZER INC-2018345235

PATIENT
  Age: 63 Year
  Sex: Female

DRUGS (1)
  1. CRIZOTINIB [Suspect]
     Active Substance: CRIZOTINIB
     Dosage: 250 MG, 2X/DAY
     Dates: start: 201803

REACTIONS (6)
  - Neutropenia [Unknown]
  - Peripheral swelling [Unknown]
  - Fatigue [Unknown]
  - Pneumonitis [Unknown]
  - Neoplasm progression [Fatal]
  - Lymphangitis [Unknown]

NARRATIVE: CASE EVENT DATE: 2018
